FAERS Safety Report 18044434 (Version 1)
Quarter: 2020Q3

REPORT INFORMATION
  Report Type: Spontaneous
  Country: CA (occurrence: CA)
  Receive Date: 20200720
  Receipt Date: 20200720
  Transmission Date: 20201103
  Serious: Yes (Other)
  Sender: FDA-Public Use
  Company Number: CA-SHIRE-CA202022483

PATIENT

DRUGS (2)
  1. GAMMAGARD LIQUID [Suspect]
     Active Substance: HUMAN IMMUNOGLOBULIN G
     Indication: SECONDARY IMMUNODEFICIENCY
     Dosage: 50 MILLILITER, 1X/DAY:QD
     Route: 042
  2. TYLENOL [Concomitant]
     Active Substance: ACETAMINOPHEN
     Indication: PRODUCT USED FOR UNKNOWN INDICATION

REACTIONS (6)
  - Febrile nonhaemolytic transfusion reaction [Unknown]
  - Coombs test positive [Unknown]
  - Heart rate increased [Unknown]
  - Body temperature increased [Unknown]
  - Chills [Unknown]
  - Hypoxia [Unknown]
